FAERS Safety Report 6781463-3 (Version None)
Quarter: 2010Q2

REPORT INFORMATION
  Report Type: 
  Country: None (occurrence: None)
  Receive Date: 20100621
  Receipt Date: 20100420
  Transmission Date: 20101027
  Serious: Yes (Death)
  Sender: FDA-Public Use
  Company Number: US-ROCHE-710247

PATIENT
  Sex: Male

DRUGS (3)
  1. XELODA [Suspect]
     Dosage: 3 TABLETS BID
     Route: 048
     Dates: start: 20100101
  2. TARCEVA [Suspect]
     Route: 048
     Dates: start: 20091101
  3. GEMZAR [Concomitant]

REACTIONS (1)
  - DISEASE PROGRESSION [None]
